FAERS Safety Report 5074214-4 (Version None)
Quarter: 2006Q3

REPORT INFORMATION
  Report Type: 
  Country: None (occurrence: None)
  Receive Date: 20060714
  Receipt Date: 20060525
  Transmission Date: 20061208
  Serious: No
  Sender: FDA-Public Use
  Company Number: 2006SP002210

PATIENT
  Age: 42 Year
  Sex: Female

DRUGS (1)
  1. LUNESTA [Suspect]
     Dosage: 4 MG;ORAL
     Route: 048

REACTIONS (1)
  - DYSGEUSIA [None]
